FAERS Safety Report 7163966-5 (Version None)
Quarter: 2010Q4

REPORT INFORMATION
  Report Type: 
  Country: None (occurrence: None)
  Receive Date: 20101215
  Receipt Date: 20101202
  Transmission Date: 20110411
  Serious: Yes (Other)
  Sender: FDA-Public Use
  Company Number: A0681597A

PATIENT
  Sex: Male

DRUGS (1)
  1. PAXIL CR [Suspect]
     Dosage: 25MG UNKNOWN
     Dates: start: 20030811

REACTIONS (4)
  - CARDIAC MURMUR [None]
  - CONGENITAL ANOMALY [None]
  - DRUG EXPOSURE DURING PREGNANCY [None]
  - VENTRICULAR SEPTAL DEFECT [None]
